FAERS Safety Report 6977479-4 (Version None)
Quarter: 2010Q3

REPORT INFORMATION
  Report Type: 
  Country: None (occurrence: None)
  Receive Date: 20100910
  Receipt Date: 20100902
  Transmission Date: 20110219
  Serious: Yes (Hospitalization)
  Sender: FDA-Public Use
  Company Number: JP-ABBOTT-10P-087-0640508-00

PATIENT
  Age: 48 Year
  Sex: Female

DRUGS (2)
  1. LUPRON DEPOT [Suspect]
     Indication: MENORRHAGIA
     Route: 058
     Dates: start: 20100206, end: 20100206
  2. LUPRON DEPOT 1.88 MG [Suspect]
     Indication: MENORRHAGIA
     Route: 058
     Dates: end: 20100401

REACTIONS (2)
  - ANAEMIA [None]
  - GENITAL HAEMORRHAGE [None]
